FAERS Safety Report 8270677-1 (Version None)
Quarter: 2012Q2

REPORT INFORMATION
  Report Type: 
  Country: None (occurrence: None)
  Receive Date: 20120405
  Receipt Date: 20120301
  Transmission Date: 20120825
  Serious: Yes (Other)
  Sender: FDA-Public Use
  Company Number: BR-025491

PATIENT
  Age: 85 Year
  Sex: Female

DRUGS (3)
  1. (CHLORAMBUCIL) (BATCH#S: 1062104) [Suspect]
     Indication: LEUKOCYTOSIS
     Dosage: TABLET 2 MG 2MG PER DAY ORAL
     Route: 048
     Dates: start: 19960101
  2. LEVOTHYROXINE SODIUM [Concomitant]
  3. AMLODIPINE [Concomitant]

REACTIONS (5)
  - INFLUENZA [None]
  - PRODUCT QUALITY ISSUE [None]
  - DIZZINESS [None]
  - LEUKOCYTOSIS [None]
  - DYSPNOEA [None]
